FAERS Safety Report 8370857-0 (Version None)
Quarter: 2012Q2

REPORT INFORMATION
  Report Type: 
  Country: None (occurrence: None)
  Receive Date: 20120518
  Receipt Date: 20111109
  Transmission Date: 20120825
  Serious: No
  Sender: FDA-Public Use
  Company Number: US-ASTRAZENECA-2011SE73751

PATIENT
  Sex: Female

DRUGS (3)
  1. ALIGN DIETARY SUPPLEMENT [Suspect]
     Route: 048
     Dates: start: 20110915
  2. BETA BLOCKING AGENTS [Concomitant]
  3. PRILOSEC OTC [Suspect]
     Route: 048
     Dates: start: 20111105

REACTIONS (2)
  - PSORIASIS [None]
  - CONDITION AGGRAVATED [None]
